FAERS Safety Report 7383854-9 (Version None)
Quarter: 2011Q1

REPORT INFORMATION
  Report Type: 
  Country: None (occurrence: None)
  Receive Date: 20110322
  Receipt Date: 20110314
  Transmission Date: 20110831
  Serious: Yes (Hospitalization)
  Sender: FDA-Public Use
  Company Number: 2011MA002385

PATIENT
  Age: 59 Year
  Sex: Female

DRUGS (5)
  1. CALCIUM CITRATE [Concomitant]
  2. COLECALCIFEROL [Concomitant]
  3. SIMVASTATIN [Concomitant]
  4. HYDROCHLOROTHIAZIDE [Suspect]
     Dosage: 50 MG, QD
  5. LEVOTHYROXINE SODIUM [Concomitant]

REACTIONS (17)
  - NAUSEA [None]
  - BLOOD CALCIUM INCREASED [None]
  - HYPERCALCAEMIA [None]
  - ABDOMINAL PAIN [None]
  - HYPOPHAGIA [None]
  - ELECTROCARDIOGRAM QT PROLONGED [None]
  - ABDOMINAL PAIN UPPER [None]
  - FATIGUE [None]
  - BLOOD POTASSIUM DECREASED [None]
  - VOMITING [None]
  - DEHYDRATION [None]
  - HYPERREFLEXIA [None]
  - BLOOD SODIUM DECREASED [None]
  - PANCREATITIS ACUTE [None]
  - SOMNOLENCE [None]
  - LETHARGY [None]
  - BLOOD GLUCOSE INCREASED [None]
